FAERS Safety Report 25185953 (Version 1)
Quarter: 2025Q2

REPORT INFORMATION
  Report Type: Report from Study
  Country: US (occurrence: US)
  Receive Date: 20250410
  Receipt Date: 20250410
  Transmission Date: 20250717
  Serious: Yes (Death, Other)
  Sender: GILEAD
  Company Number: US-GILEAD-2025-0710023

PATIENT
  Age: 83 Year
  Sex: Male

DRUGS (1)
  1. IDELALISIB [Suspect]
     Active Substance: IDELALISIB
     Indication: B-cell lymphoma
     Dosage: 150MG BY MOUTH 2 TIMES A DAY
     Route: 048
     Dates: start: 20220822

REACTIONS (1)
  - Death [Fatal]

NARRATIVE: CASE EVENT DATE: 20250407
